FAERS Safety Report 12404377 (Version 1)
Quarter: 2016Q2

REPORT INFORMATION
  Report Type: Spontaneous
  Country: PL (occurrence: PL)
  Receive Date: 20160525
  Receipt Date: 20160525
  Transmission Date: 20160815
  Serious: Yes (Hospitalization)
  Sender: FDA-Public Use
  Company Number: PHHY2016PL070037

PATIENT
  Age: 71 Year
  Sex: Male

DRUGS (9)
  1. MOXIFLOXACIN. [Suspect]
     Active Substance: MOXIFLOXACIN
     Indication: EYE INFLAMMATION
     Route: 061
  2. ACETYLSALICYLIC ACID [Concomitant]
     Active Substance: ASPIRIN
     Indication: PRODUCT USED FOR UNKNOWN INDICATION
     Dosage: 150 MG,
     Route: 065
  3. DEXAMETHAZONE [Suspect]
     Active Substance: DEXAMETHASONE
     Indication: EYE INFLAMMATION
     Route: 061
  4. PERINDOPRIL [Concomitant]
     Active Substance: PERINDOPRIL
     Indication: PRODUCT USED FOR UNKNOWN INDICATION
     Dosage: 5 MG,
     Route: 065
  5. CEFTRIAXONE. [Suspect]
     Active Substance: CEFTRIAXONE
     Indication: EYE INFLAMMATION
     Dosage: 1 G, BID
     Route: 065
  6. PHENYLEPHRINE [Suspect]
     Active Substance: PHENYLEPHRINE\PHENYLEPHRINE HYDROCHLORIDE
     Indication: EYE INFLAMMATION
     Route: 061
  7. VANCOMYCIN [Suspect]
     Active Substance: VANCOMYCIN
     Indication: EYE INFLAMMATION
     Dosage: 1 G, BID
     Route: 065
  8. TROPICAMIDE. [Suspect]
     Active Substance: TROPICAMIDE
     Indication: EYE INFLAMMATION
     Route: 061
  9. METHYLPREDISOLONE [Suspect]
     Active Substance: METHYLPREDNISOLONE
     Indication: EYE INFLAMMATION
     Route: 061

REACTIONS (1)
  - Drug ineffective [Unknown]
